FAERS Safety Report 4744448-4 (Version None)
Quarter: 2005Q3

REPORT INFORMATION
  Report Type: 
  Country: None (occurrence: None)
  Receive Date: 20050809
  Receipt Date: 20050802
  Transmission Date: 20060218
  Serious: Yes (Other)
  Sender: FDA-Public Use
  Company Number: 2005110267

PATIENT
  Age: 71 Year
  Sex: Male
  Weight: 77.1115 kg

DRUGS (6)
  1. CELEBREX [Suspect]
     Indication: ARTHRITIS
  2. BEXTRA [Suspect]
     Indication: ARTHRITIS
     Dosage: 20 MG (20 MG, 1 IN 1 D),
     Dates: start: 20040101
  3. BEXTRA [Suspect]
     Indication: NEURITIS
     Dosage: 20 MG (20 MG, 1 IN 1 D),
     Dates: start: 20040101
  4. VALSARTAN [Concomitant]
  5. KAOLIN (KAOLIN) [Concomitant]
  6. ACETYLSALICYLIC ACID SRT [Concomitant]

REACTIONS (3)
  - DRUG EFFECT DECREASED [None]
  - MUSCULOSKELETAL DISORDER [None]
  - NEURITIS [None]
